FAERS Safety Report 15235242 (Version 1)
Quarter: 2018Q3

REPORT INFORMATION
  Report Type: Spontaneous
  Country: DK (occurrence: DK)
  Receive Date: 20180803
  Receipt Date: 20180803
  Transmission Date: 20181010
  Serious: Yes (Other)
  Sender: FDA-Public Use
  Company Number: DK-TEVA-2018-DK-934678

PATIENT
  Age: 61 Year
  Sex: Male

DRUGS (1)
  1. NEOTIGASON [Suspect]
     Active Substance: ACITRETIN
     Indication: ECZEMA
     Dosage: 25 MILLIGRAM DAILY; STYRKE
     Route: 048
     Dates: start: 20170515, end: 20180424

REACTIONS (2)
  - Headache [Recovering/Resolving]
  - Polyneuropathy [Recovering/Resolving]

NARRATIVE: CASE EVENT DATE: 20180226
